FAERS Safety Report 23973764 (Version 1)
Quarter: 2024Q2

REPORT INFORMATION
  Report Type: Spontaneous
  Country: US (occurrence: US)
  Receive Date: 20240613
  Receipt Date: 20240613
  Transmission Date: 20240716
  Serious: No
  Sender: FDA-Public Use
  Company Number: US-009507513-2406USA003684

PATIENT
  Age: 12 Year
  Weight: 49.4 kg

DRUGS (6)
  1. NOXAFIL [Interacting]
     Active Substance: POSACONAZOLE
     Indication: Antifungal treatment
     Dosage: UNK
     Route: 048
  2. RUXOLITINIB [Interacting]
     Active Substance: RUXOLITINIB
     Indication: Chronic graft versus host disease in lung
     Dosage: 5 MILLIGRAM, BID
     Route: 048
  3. CYCLOSPORINE [Interacting]
     Active Substance: CYCLOSPORINE
     Indication: Prophylaxis against graft versus host disease
  4. AZITHROMYCIN [Concomitant]
     Active Substance: AZITHROMYCIN
     Dosage: UNK
  5. MYCOPHENOLATE MOFETIL [Concomitant]
     Active Substance: MYCOPHENOLATE MOFETIL
     Indication: Prophylaxis against graft versus host disease
  6. ABATACEPT [Concomitant]
     Active Substance: ABATACEPT
     Indication: Prophylaxis against graft versus host disease

REACTIONS (1)
  - Labelled drug-drug interaction issue [Unknown]
